FAERS Safety Report 11024571 (Version 2)
Quarter: 2015Q2

REPORT INFORMATION
  Report Type: Report from Study
  Country: CA (occurrence: CA)
  Receive Date: 20150414
  Receipt Date: 20150505
  Transmission Date: 20150821
  Serious: Yes (Other)
  Sender: FDA-Public Use
  Company Number: CA-AMGEN-CANSL2015033832

PATIENT
  Age: 84 Year
  Sex: Female
  Weight: 62.7 kg

DRUGS (12)
  1. FUROSEMIDE. [Concomitant]
     Active Substance: FUROSEMIDE
     Dosage: UNK
  2. PANTOLOC                           /01263204/ [Concomitant]
     Active Substance: PANTOPRAZOLE SODIUM
     Dosage: UNK
  3. TYLENOL [Concomitant]
     Active Substance: ACETAMINOPHEN
     Dosage: UNK
  4. D3 [Concomitant]
     Active Substance: 25-HYDROXYCHOLECALCIFEROL, 5-TRANS-
     Dosage: UNK
  5. MICARDIS [Concomitant]
     Active Substance: TELMISARTAN
     Dosage: UNK
  6. TYLENOL ARTHRITIS PAIN [Concomitant]
     Active Substance: ACETAMINOPHEN
     Dosage: UNK
  7. PROLIA [Suspect]
     Active Substance: DENOSUMAB
     Indication: OSTEOPOROSIS POSTMENOPAUSAL
     Dosage: 60 MG, Q6MO
     Route: 058
     Dates: start: 20130412
  8. FERROUS GLUCONATE [Concomitant]
     Active Substance: FERROUS GLUCONATE
     Dosage: UNK
  9. ZOPICLONE [Concomitant]
     Active Substance: ZOPICLONE
     Dosage: UNK
  10. CITALOPRAM [Concomitant]
     Active Substance: CITALOPRAM HYDROBROMIDE
     Dosage: UNK
  11. CALCIUM                            /00060701/ [Concomitant]
     Active Substance: CALCIUM
     Dosage: UNK
  12. ELTROXIN [Concomitant]
     Active Substance: LEVOTHYROXINE
     Dosage: UNK

REACTIONS (4)
  - Impaired healing [Unknown]
  - Exostosis [Unknown]
  - Exposed bone in jaw [Not Recovered/Not Resolved]
  - Gingival disorder [Not Recovered/Not Resolved]

NARRATIVE: CASE EVENT DATE: 201503
